FAERS Safety Report 5499043-9 (Version None)
Quarter: 2007Q4

REPORT INFORMATION
  Report Type: 
  Country: None (occurrence: None)
  Receive Date: 20071026
  Receipt Date: 20070522
  Transmission Date: 20080405
  Serious: No
  Sender: FDA-Public Use
  Company Number: A0652390A

PATIENT
  Age: 71 Year
  Sex: Female

DRUGS (5)
  1. ADVAIR DISKUS 100/50 [Suspect]
     Indication: ASTHMA
     Route: 055
  2. SEREVENT [Concomitant]
  3. ALBUTEROL [Concomitant]
  4. CARTIA XT [Concomitant]
  5. BLOOD PRESSURE MEDICATION [Concomitant]

REACTIONS (1)
  - APHONIA [None]
